FAERS Safety Report 10651684 (Version 2)
Quarter: 2015Q1

REPORT INFORMATION
  Report Type: Other
  Country: CN (occurrence: CN)
  Receive Date: 20141215
  Receipt Date: 20150202
  Transmission Date: 20150720
  Serious: Yes (Hospitalization)
  Sender: FDA-Public Use
  Company Number: CN-ASTELLAS-2014US019918

PATIENT
  Age: 74 Year
  Sex: Male

DRUGS (11)
  1. SODIUM VALPROATE [Concomitant]
     Active Substance: VALPROATE SODIUM
     Indication: PRODUCT USED FOR UNKNOWN INDICATION
     Dosage: 0.5 G, THRICE DAILY
     Route: 045
     Dates: start: 20140103
  2. 0.9% NS100 ML AND PIPERACILLIN SODIUM AND SULBACTAM SODIUM [Concomitant]
     Indication: PRODUCT USED FOR UNKNOWN INDICATION
     Dosage: 2.5 G, EVERY 8 HOURS (IVGTT)
     Route: 042
  3. 0.9% NS 50ML AND SODIUM VALPROATE [Concomitant]
     Indication: PROPHYLAXIS
     Dosage: 0.4 MG, UNKNOWN FREQ (MICRO PUMP)
     Route: 050
     Dates: start: 20131231
  4. CAPTOPRIL. [Concomitant]
     Active Substance: CAPTOPRIL
     Indication: PRODUCT USED FOR UNKNOWN INDICATION
     Route: 045
     Dates: start: 20140103
  5. CARBAMAZEPINE. [Suspect]
     Active Substance: CARBAMAZEPINE
     Indication: PRODUCT USED FOR UNKNOWN INDICATION
     Dosage: 0.1 G, EVERY 6 HOURS
     Route: 045
     Dates: start: 20140103
  6. 0.9% NS 100 ML AND BIAPENEM [Concomitant]
     Indication: PRODUCT USED FOR UNKNOWN INDICATION
     Dosage: 0.3 G, EVERY 8 HOURS (IVGTT)
     Route: 042
     Dates: start: 20140103
  7. 0.9% NS 100 ML AND MICAFUNGIN SODIUM [Concomitant]
     Indication: PRODUCT USED FOR UNKNOWN INDICATION
     Dosage: 100 MG, ONCE DAILY (IVGTT)
     Route: 042
  8. AMLODIPINE BESYLATE. [Concomitant]
     Active Substance: AMLODIPINE BESYLATE
     Indication: PRODUCT USED FOR UNKNOWN INDICATION
     Route: 045
     Dates: start: 20140103
  9. LEVOFLOAXACIN LACTATE AND SODIUM CHLORIDE [Concomitant]
     Indication: PRODUCT USED FOR UNKNOWN INDICATION
     Dosage: 0.5 G, ONCE DAILY (IVGTT)
     Route: 042
  10. 0.9% NS 100ML AND NALOXONE HYDROCHLORIDE [Concomitant]
     Indication: PRODUCT USED FOR UNKNOWN INDICATION
     Dosage: 8 MG, UNKNOWN FREQ. (INJECTION BY MICROPUMP)
     Route: 050
     Dates: start: 20140115, end: 20140120
  11. MYCAMINE [Suspect]
     Active Substance: MICAFUNGIN SODIUM
     Indication: FUNGAL INFECTION
     Dosage: 0.1 G, ONCE DAILY
     Route: 042
     Dates: start: 20140113, end: 20140120

REACTIONS (2)
  - Dermatitis exfoliative [Recovering/Resolving]
  - Drug reaction with eosinophilia and systemic symptoms [Recovering/Resolving]

NARRATIVE: CASE EVENT DATE: 20140118
